FAERS Safety Report 12411168 (Version 4)
Quarter: 2016Q2

REPORT INFORMATION
  Report Type: Spontaneous
  Country: IT (occurrence: IT)
  Receive Date: 20160527
  Receipt Date: 20160607
  Transmission Date: 20160815
  Serious: Yes (Hospitalization)
  Sender: FDA-Public Use
  Company Number: IT-ROCHE-1765446

PATIENT
  Age: 60 Year
  Sex: Female

DRUGS (2)
  1. ROACTEMRA [Suspect]
     Active Substance: TOCILIZUMAB
     Indication: RHEUMATOID ARTHRITIS
     Route: 042
     Dates: start: 20131218
  2. ROACTEMRA [Suspect]
     Active Substance: TOCILIZUMAB
     Indication: RHEUMATOID ARTHRITIS
     Dosage: 0.9ML PREFILLED SYRINGE(GLASS)-4 PREFILLED SYRINGE
     Route: 058
     Dates: end: 20160524

REACTIONS (2)
  - Hypertensive crisis [Unknown]
  - Chest pain [Unknown]

NARRATIVE: CASE EVENT DATE: 20160524
